FAERS Safety Report 9151205 (Version 1)
Quarter: 2013Q1

REPORT INFORMATION
  Report Type: Spontaneous
  Country: AU (occurrence: AU)
  Receive Date: 20130308
  Receipt Date: 20130308
  Transmission Date: 20140127
  Serious: Yes (Other)
  Sender: FDA-Public Use
  Company Number: AU-ROCHE-1199313

PATIENT
  Sex: Male

DRUGS (2)
  1. NUTROPIN AQ [Suspect]
     Indication: OFF LABEL USE
     Dosage: 10 MG/2ML, DOSE: 6 TO 6.1 MG/WEEK
     Route: 058
     Dates: start: 20111106
  2. NUTROPIN AQ [Suspect]
     Route: 058

REACTIONS (1)
  - Knee deformity [Recovered/Resolved]
